FAERS Safety Report 13727765 (Version 3)
Quarter: 2017Q4

REPORT INFORMATION
  Report Type: Report from Study
  Country: AR (occurrence: AR)
  Receive Date: 20170707
  Receipt Date: 20171109
  Transmission Date: 20180320
  Serious: Yes (Other)
  Sender: FDA-Public Use
  Company Number: PHHY2017AR097740

PATIENT
  Age: 75 Year
  Sex: Male

DRUGS (7)
  1. MEKINIST [Suspect]
     Active Substance: TRAMETINIB DIMETHYL SULFOXIDE
     Indication: MALIGNANT MELANOMA
     Dosage: 1 DF, QD
     Route: 065
     Dates: start: 20170202, end: 20170502
  2. AZECAR [Concomitant]
     Indication: THROMBOSIS
     Dosage: UNK
     Route: 065
  3. GADOPRIL [Concomitant]
     Indication: PRODUCT USED FOR UNKNOWN INDICATION
     Dosage: 5 MG, QD
     Route: 065
  4. TAFINLAR [Suspect]
     Active Substance: DABRAFENIB MESYLATE
     Dosage: 3 DF, QD
     Route: 065
  5. TAFINLAR [Suspect]
     Active Substance: DABRAFENIB MESYLATE
     Indication: MALIGNANT MELANOMA
     Dosage: 4 DF (2 IN THE MORNING AND 2 IN THE NIGHT), QD
     Route: 065
     Dates: start: 20170202
  6. TAFINLAR [Suspect]
     Active Substance: DABRAFENIB MESYLATE
     Dosage: 4 DF (2 IN THE MORNING AND 2 IN THE NIGHT), QD
     Route: 065
  7. ATENOLOL. [Concomitant]
     Active Substance: ATENOLOL
     Indication: PRODUCT USED FOR UNKNOWN INDICATION
     Dosage: 12.5 MG (HALF DAILY), QD
     Route: 065

REACTIONS (3)
  - Peripheral swelling [Unknown]
  - Thrombosis [Recovered/Resolved]
  - Depressed mood [Recovering/Resolving]

NARRATIVE: CASE EVENT DATE: 201704
